FAERS Safety Report 9883642 (Version 8)
Quarter: 2014Q2

REPORT INFORMATION
  Report Type: Report from Study
  Country: CA (occurrence: CA)
  Receive Date: 20140210
  Receipt Date: 20140626
  Transmission Date: 20141212
  Serious: Yes (Hospitalization)
  Sender: FDA-Public Use
  Company Number: CA-ROCHE-1339685

PATIENT
  Age: 51 Year
  Sex: Female
  Weight: 102.6 kg

DRUGS (36)
  1. OBINUTUZUMAB [Suspect]
     Indication: DIFFUSE LARGE B-CELL LYMPHOMA
     Dosage: 4 MG/ML
     Route: 042
     Dates: start: 20140123
  2. CYCLOPHOSPHAMIDE [Suspect]
     Indication: DIFFUSE LARGE B-CELL LYMPHOMA
     Route: 042
     Dates: start: 20140123
  3. DOXORUBICIN [Suspect]
     Indication: DIFFUSE LARGE B-CELL LYMPHOMA
     Route: 042
     Dates: start: 20140123
  4. PREDNISONE [Suspect]
     Indication: DIFFUSE LARGE B-CELL LYMPHOMA
     Dosage: DATE OF LAST DOSE PRIOR TO SAE: 24/JAN/2014, 27/JAN/2014.
     Route: 048
     Dates: start: 20140123
  5. VINCRISTINE [Suspect]
     Indication: DIFFUSE LARGE B-CELL LYMPHOMA
     Route: 040
     Dates: start: 20140123
  6. LACTULOSE [Concomitant]
     Indication: CONSTIPATION
     Route: 065
     Dates: start: 201312, end: 201401
  7. PERINDOPRIL [Concomitant]
     Indication: HYPERTENSION
     Route: 065
     Dates: start: 2008, end: 20140314
  8. SYNTHROID [Concomitant]
     Indication: HYPOTHYROIDISM
     Route: 065
     Dates: start: 2008
  9. ACIDOPHILUS [Concomitant]
     Indication: CONSTIPATION
     Route: 065
     Dates: start: 2012, end: 201401
  10. ESTRADIOL [Concomitant]
     Indication: VULVOVAGINAL DRYNESS
     Route: 065
     Dates: start: 2012
  11. TYLENOL [Concomitant]
     Indication: ABDOMINAL PAIN
     Route: 065
     Dates: start: 201312
  12. TYLENOL [Concomitant]
     Indication: PREMEDICATION
     Route: 065
     Dates: start: 20140123
  13. GRAVOL [Concomitant]
     Indication: NAUSEA
     Route: 065
     Dates: start: 201312
  14. GRAVOL [Concomitant]
     Route: 065
     Dates: start: 20140128, end: 20140206
  15. DILAUDID [Concomitant]
     Indication: ABDOMINAL PAIN
     Route: 065
     Dates: start: 20140114, end: 20140124
  16. DILAUDID [Concomitant]
     Route: 065
     Dates: start: 20140115, end: 20140128
  17. ATIVAN [Concomitant]
     Indication: ANXIETY
     Route: 065
     Dates: start: 20140120, end: 201402
  18. ALLOPURINOL [Concomitant]
     Indication: PROPHYLAXIS
     Route: 065
     Dates: start: 20140122, end: 20140126
  19. TAMIFLU [Concomitant]
     Indication: ANTIVIRAL PROPHYLAXIS
     Route: 065
     Dates: start: 20140127, end: 20140206
  20. FLUCONAZOLE [Concomitant]
     Indication: CANDIDA INFECTION
     Route: 065
     Dates: start: 20140127, end: 20140202
  21. ZOFRAN [Concomitant]
     Indication: PREMEDICATION
     Route: 065
     Dates: start: 20140122
  22. ZOFRAN [Concomitant]
     Route: 065
     Dates: start: 20140124, end: 20140131
  23. BENADRYL (CANADA) [Concomitant]
     Indication: PREMEDICATION
     Route: 065
     Dates: start: 20140123
  24. PARIET [Concomitant]
     Indication: GASTROINTESTINAL HAEMORRHAGE
     Route: 065
     Dates: start: 20140128, end: 20140130
  25. PARIET [Concomitant]
     Route: 065
     Dates: start: 20140130, end: 20140207
  26. PANTOPRAZOLE [Concomitant]
     Indication: GASTROINTESTINAL HAEMORRHAGE
     Route: 065
     Dates: start: 20140129, end: 20140201
  27. MORPHINE [Concomitant]
     Indication: ABDOMINAL PAIN
     Route: 065
     Dates: start: 20140128, end: 20140202
  28. POLYETHYLENE GLYCOL [Concomitant]
     Indication: CONSTIPATION
     Route: 065
     Dates: start: 20140129, end: 20140202
  29. NORMAL SALINE [Concomitant]
     Indication: GASTROINTESTINAL HAEMORRHAGE
     Route: 065
     Dates: start: 20140129, end: 20140129
  30. MAGNESIUM HYDROXIDE [Concomitant]
     Indication: DYSPEPSIA
     Route: 065
     Dates: start: 20140127, end: 20140127
  31. COLACE [Concomitant]
     Indication: CONSTIPATION
     Route: 065
     Dates: start: 20140129, end: 20140129
  32. FLEET ENEMA [Concomitant]
     Indication: CONSTIPATION
     Route: 065
     Dates: start: 20140129, end: 20140129
  33. SLOW K [Concomitant]
     Indication: HYPOKALAEMIA
     Route: 065
     Dates: start: 20140202, end: 20140207
  34. FRAGMIN [Concomitant]
     Indication: THROMBOPHLEBITIS SUPERFICIAL
     Route: 065
     Dates: start: 20140202, end: 20140206
  35. POTASSIUM CHLORIDE [Concomitant]
     Indication: HYPOKALAEMIA
     Route: 065
     Dates: start: 20140203, end: 20140207
  36. K-DUR [Concomitant]
     Indication: HYPOKALAEMIA
     Route: 065
     Dates: start: 20140207

REACTIONS (2)
  - Pleural effusion [Recovered/Resolved]
  - Febrile neutropenia [Recovered/Resolved]
